FAERS Safety Report 6544475-0 (Version None)
Quarter: 2010Q1

REPORT INFORMATION
  Report Type: 
  Country: None (occurrence: None)
  Receive Date: 20100121
  Receipt Date: 20100111
  Transmission Date: 20100710
  Serious: Yes (Death)
  Sender: FDA-Public Use
  Company Number: ES-ROCHE-674382

PATIENT
  Age: 33 Year
  Sex: Female

DRUGS (42)
  1. VESANOID [Suspect]
     Route: 048
     Dates: start: 20090917, end: 20091002
  2. ALLOPURINOL [Concomitant]
     Route: 048
  3. AMIKACIN SULFATE [Concomitant]
     Route: 042
  4. AMOXICILLIN SODIUM [Concomitant]
     Route: 048
  5. AMBISOME [Concomitant]
     Dosage: DRUG: AMBISONE
     Route: 041
  6. CEFEPIME [Concomitant]
  7. CHLORHEXIDINE GLUCONATE [Concomitant]
     Dosage: DRUG REPORTED AS: CHLOREXIDINE
     Route: 048
  8. CODEINE [Concomitant]
     Route: 048
  9. COLISTIN [Concomitant]
     Route: 042
  10. DEXAMETHASONE [Concomitant]
     Route: 042
  11. DEXTROCHLORPHENIRAMINE [Concomitant]
     Dosage: DRUG: DEXTROCHLORPHENIRAMINE MALEATE.
     Route: 042
  12. DEXKETOPROFEN [Concomitant]
     Route: 042
  13. DIPYRONE [Concomitant]
     Route: 042
  14. SPIRONOLACTONE [Concomitant]
     Route: 048
  15. FENTANYL [Concomitant]
     Route: 041
  16. FLUCONAZOLE [Concomitant]
     Route: 042
  17. FOLIC ACID [Concomitant]
     Route: 048
  18. FUROSEMIDE [Concomitant]
     Route: 048
  19. PROPOFOL [Concomitant]
  20. GRANISETRON [Concomitant]
  21. INSULIN [Concomitant]
  22. LINEZOLID [Concomitant]
  23. LOPERAMIDE [Concomitant]
     Dosage: DRUG REPORTED AS LOPERAMINE
  24. LORAZEPAM [Concomitant]
  25. MEROPENEM [Concomitant]
  26. METOCLOPRAMIDE [Concomitant]
  27. MORPHINE [Concomitant]
  28. NYSTATIN [Concomitant]
  29. OMEPRAZOLE [Concomitant]
  30. NORADRENALINE [Concomitant]
  31. PIPERACILLIN AND TAZOBACTAM [Concomitant]
  32. RETINOL [Concomitant]
     Dosage: DRUG: RETINOL PLUS
  33. GENTAMICIN [Concomitant]
  34. TEICOPLANIN [Concomitant]
     Route: 042
  35. TIGECYCLINE [Concomitant]
     Route: 042
  36. TRANEXAMIC ACID [Concomitant]
  37. VITAMIN K TAB [Concomitant]
  38. FILGRASTIM [Concomitant]
     Dosage: DRUG REPORTED AS: FILGASTRIN
     Route: 058
  39. TRAMADOL [Concomitant]
     Dosage: DRUG NAME: TRAMADOLAC
  40. CALCIUM FOLINATE [Concomitant]
     Route: 041
  41. CLAVULANATE POTASSIUM [Concomitant]
     Route: 048
  42. SODIUM BICARBONATE [Concomitant]
     Route: 042

REACTIONS (2)
  - GASTROINTESTINAL TOXICITY [None]
  - HEPATOTOXICITY [None]
